FAERS Safety Report 4708982-5 (Version None)
Quarter: 2005Q3

REPORT INFORMATION
  Report Type: 
  Country: None (occurrence: None)
  Receive Date: 20050707
  Receipt Date: 20050623
  Transmission Date: 20060218
  Serious: Yes (Hospitalization, Other)
  Sender: FDA-Public Use
  Company Number: 2005070331

PATIENT
  Age: 66 Year
  Sex: Female
  Weight: 63.5036 kg

DRUGS (2)
  1. CELEBREX [Suspect]
     Indication: ARTHRITIS
     Dosage: 200 MG (200 MG, 1 IN 1 D), ORAL
     Route: 048
     Dates: start: 20041001
  2. MOTRIN [Suspect]
     Indication: ILL-DEFINED DISORDER
     Dosage: 1 IN 1 D
     Dates: start: 20050201, end: 20050201

REACTIONS (20)
  - ABDOMINAL DISTENSION [None]
  - BLOOD BILIRUBIN INCREASED [None]
  - BLOOD CREATINE INCREASED [None]
  - BLOOD CREATININE INCREASED [None]
  - BLOOD GLUCOSE INCREASED [None]
  - BLOOD SODIUM DECREASED [None]
  - BLOOD UREA INCREASED [None]
  - CHILLS [None]
  - CHROMATURIA [None]
  - DECREASED APPETITE [None]
  - DEHYDRATION [None]
  - DIVERTICULAR PERFORATION [None]
  - DIVERTICULUM [None]
  - GASTRIC ULCER [None]
  - HYPOKALAEMIA [None]
  - LETHARGY [None]
  - PYREXIA [None]
  - URINE OUTPUT DECREASED [None]
  - VOMITING [None]
  - WEIGHT DECREASED [None]
